FAERS Safety Report 24399073 (Version 2)
Quarter: 2024Q4

REPORT INFORMATION
  Report Type: Spontaneous
  Country: US (occurrence: US)
  Receive Date: 20241004
  Receipt Date: 20241105
  Transmission Date: 20250115
  Serious: No
  Sender: ALKERMES
  Company Number: US-ALKERMES INC.-ALK-2024-002488

PATIENT
  Age: 22 Year
  Sex: Male
  Weight: 70.748 kg

DRUGS (4)
  1. VIVITROL [Suspect]
     Active Substance: NALTREXONE
     Indication: Alcohol use disorder
     Dosage: 380 MILLIGRAM, Q4WK
     Route: 030
     Dates: start: 20240802
  2. NALTREXONE [Concomitant]
     Active Substance: NALTREXONE
     Indication: Alcohol use disorder
     Dosage: 50 MILLIGRAM, QD
     Route: 048
     Dates: start: 20240719, end: 20240802
  3. CLONIDINE [Concomitant]
     Active Substance: CLONIDINE
     Indication: Alcohol use disorder
     Dosage: 0.1 MILLIGRAM, BID
     Route: 048
     Dates: start: 20240712, end: 20240719
  4. ACAMPROSATE [Concomitant]
     Active Substance: ACAMPROSATE
     Indication: Alcohol use disorder
     Dosage: 333 MILLIGRAM,2 TABS TID
     Route: 048
     Dates: start: 20240712, end: 20240719

REACTIONS (2)
  - Product administration error [Recovered/Resolved]
  - Product preparation error [Recovered/Resolved]

NARRATIVE: CASE EVENT DATE: 20240925
